FAERS Safety Report 20011676 (Version 2)
Quarter: 2021Q4

REPORT INFORMATION
  Report Type: Other
  Country: DK (occurrence: None)
  Receive Date: 20211029
  Receipt Date: 20211119
  Transmission Date: 20220303
  Serious: Yes (Hospitalization, Other)
  Sender: FDA-Public Use
  Company Number: DK-ROCHE-2932678

PATIENT

DRUGS (1)
  1. OCRELIZUMAB [Suspect]
     Active Substance: OCRELIZUMAB
     Indication: Multiple sclerosis
     Route: 065

REACTIONS (15)
  - COVID-19 [Unknown]
  - Pneumonia [Unknown]
  - Infusion related reaction [Unknown]
  - Infection [Unknown]
  - Upper respiratory tract infection [Unknown]
  - Pharyngitis [Unknown]
  - Nasopharyngitis [Unknown]
  - Herpes virus infection [Unknown]
  - Urinary tract infection [Unknown]
  - Vertigo [Unknown]
  - Paraesthesia [Unknown]
  - Gastrointestinal disorder [Unknown]
  - Myalgia [Unknown]
  - Arthralgia [Unknown]
  - Alopecia [Unknown]
